FAERS Safety Report 19920756 (Version 1)
Quarter: 2021Q4

REPORT INFORMATION
  Report Type: Spontaneous
  Country: US (occurrence: US)
  Receive Date: 20211005
  Receipt Date: 20211005
  Transmission Date: 20220304
  Serious: No
  Sender: FDA-Public Use
  Company Number: US-GLENMARK PHARMACEUTICALS-2021GMK052411

PATIENT

DRUGS (10)
  1. GABAPENTIN [Suspect]
     Active Substance: GABAPENTIN
     Indication: Neuralgia
     Dosage: UNK (USING SINCE 8 YEARS AGO)
     Route: 048
  2. GABAPENTIN [Suspect]
     Active Substance: GABAPENTIN
     Indication: Pain
     Dosage: 600 MILLIGRAM, TID (PREVIOUS REFILLS)
     Route: 048
     Dates: start: 2020
  3. GABAPENTIN [Suspect]
     Active Substance: GABAPENTIN
     Dosage: 600 MILLIGRAM, TID (LATEST REFILL)
     Route: 048
     Dates: start: 202102
  4. PROMETHAZINE [Concomitant]
     Active Substance: PROMETHAZINE HYDROCHLORIDE
     Indication: Nausea
     Dosage: 1 DOSAGE FORM, EVERY 4 HOURS
     Route: 048
     Dates: start: 2020
  5. PROMETHAZINE [Concomitant]
     Active Substance: PROMETHAZINE HYDROCHLORIDE
     Indication: Vomiting
  6. HYDROXYZINE [Concomitant]
     Active Substance: HYDROXYZINE HYDROCHLORIDE
     Indication: Anxiety
     Dosage: 1 DOSAGE FORM, TID
     Route: 048
  7. ALBUTEROL [Concomitant]
     Active Substance: ALBUTEROL
     Indication: Hyperventilation
     Dosage: UNK; NOT IN USER FREQUENTLY
  8. ALBUTEROL [Concomitant]
     Active Substance: ALBUTEROL
     Indication: Panic attack
  9. DEPAKOTE [Concomitant]
     Active Substance: DIVALPROEX SODIUM
     Indication: Epilepsy
     Dosage: UNK, BID; FOR OVER 20 YEARS NOW
     Route: 048
  10. DEPAKOTE [Concomitant]
     Active Substance: DIVALPROEX SODIUM
     Indication: Affective disorder

REACTIONS (7)
  - Epigastric discomfort [Recovered/Resolved]
  - Heart rate increased [Recovered/Resolved]
  - Insomnia [Unknown]
  - Palpitations [Recovered/Resolved]
  - Anxiety [Recovered/Resolved]
  - Therapy non-responder [Unknown]
  - Product quality issue [Unknown]

NARRATIVE: CASE EVENT DATE: 20200101
